FAERS Safety Report 20855931 (Version 1)
Quarter: 2022Q2

REPORT INFORMATION
  Report Type: Spontaneous
  Country: US (occurrence: US)
  Receive Date: 20220520
  Receipt Date: 20220520
  Transmission Date: 20220721
  Serious: No
  Sender: FDA-Public Use
  Company Number: US-PFIZER INC-202200419279

PATIENT
  Age: 80 Year
  Sex: Female

DRUGS (1)
  1. EUCRISA [Suspect]
     Active Substance: CRISABOROLE
     Dosage: UNK (60G TUBE, 30-DAY SUPPLY) (DIRECTIONS FOR USE THIGHS AND BACK)

REACTIONS (4)
  - Eczema [Unknown]
  - Irritable bowel syndrome [Unknown]
  - Therapeutic product effect incomplete [Unknown]
  - Expired product administered [Unknown]
